FAERS Safety Report 6978582-5 (Version None)
Quarter: 2010Q3

REPORT INFORMATION
  Report Type: 
  Country: None (occurrence: None)
  Receive Date: 20100913
  Receipt Date: 20100902
  Transmission Date: 20110219
  Serious: Yes (Other)
  Sender: FDA-Public Use
  Company Number: RU-ROCHE-664090

PATIENT

DRUGS (1)
  1. INTERFERON ALFA-2A [Suspect]
     Route: 058

REACTIONS (2)
  - ATRIOVENTRICULAR BLOCK [None]
  - AUTONOMIC NERVOUS SYSTEM IMBALANCE [None]
